FAERS Safety Report 16775612 (Version 1)
Quarter: 2019Q3

REPORT INFORMATION
  Report Type: Spontaneous
  Country: ZA (occurrence: ZA)
  Receive Date: 20190905
  Receipt Date: 20190905
  Transmission Date: 20191005
  Serious: Yes (Other)
  Sender: FDA-Public Use
  Company Number: ZA-PFIZER INC-2019329898

PATIENT
  Age: 29 Year
  Sex: Female

DRUGS (1)
  1. PRANDIN [Suspect]
     Active Substance: REPAGLINIDE
     Indication: LABOUR INDUCTION
     Dosage: 2 MG, UNKNOWN FREQUENCY
     Dates: start: 20190724

REACTIONS (4)
  - Vaginal haemorrhage [Unknown]
  - Uterine hyperstimulation [Unknown]
  - Uterine rupture [Unknown]
  - Premature separation of placenta [Unknown]

NARRATIVE: CASE EVENT DATE: 20190724
